FAERS Safety Report 24832178 (Version 2)
Quarter: 2025Q1

REPORT INFORMATION
  Report Type: Spontaneous
  Country: US (occurrence: US)
  Receive Date: 20250110
  Receipt Date: 20250114
  Transmission Date: 20250408
  Serious: Yes (Hospitalization)
  Sender: PFIZER
  Company Number: US-MLMSERVICE-20241230-PI325101-00129-1

PATIENT
  Age: 62 Year
  Sex: Female

DRUGS (1)
  1. DOXYCYCLINE HYCLATE [Suspect]
     Active Substance: DOXYCYCLINE HYCLATE

REACTIONS (1)
  - Generalised bullous fixed drug eruption [Recovered/Resolved]
